FAERS Safety Report 8730115 (Version 3)
Quarter: 2012Q4

REPORT INFORMATION
  Report Type: 
  Country: JP (occurrence: JP)
  Receive Date: 20120817
  Receipt Date: 20120904
  Transmission Date: 20130627
  Serious: Yes (Death)
  Sender: FDA-Public Use
  Company Number: PHHY2012JP071079

PATIENT
  Age: 28 Year
  Sex: Female

DRUGS (1)
  1. CICLOSPORIN [Suspect]
     Indication: ACUTE GRAFT VERSUS HOST DISEASE

REACTIONS (3)
  - Encephalomyelitis [Fatal]
  - Simplex virus test positive [Fatal]
  - Altered state of consciousness [Fatal]
